FAERS Safety Report 7817938-5 (Version None)
Quarter: 2011Q4

REPORT INFORMATION
  Report Type: 
  Country: None (occurrence: None)
  Receive Date: 20111017
  Receipt Date: 20111004
  Transmission Date: 20120403
  Serious: Yes (Death)
  Sender: FDA-Public Use
  Company Number: US-GLAXOSMITHKLINE-A0948713A

PATIENT
  Age: 78 Year
  Sex: Female
  Weight: 56.4 kg

DRUGS (7)
  1. TYKERB [Suspect]
     Indication: PRODUCT USED FOR UNKNOWN INDICATION
     Dosage: 1250MG PER DAY
     Route: 048
     Dates: start: 20100629
  2. SYNTHROID [Concomitant]
  3. PRAVASTATIN [Concomitant]
  4. TRAZODONE HYDROCHLORIDE [Concomitant]
  5. AMLODIPINE BESYLATE [Concomitant]
  6. FOSINOPRIL SODIUM [Concomitant]
  7. METFORMIN HYDROCHLORIDE [Concomitant]

REACTIONS (1)
  - DEATH [None]
